FAERS Safety Report 25374170 (Version 1)
Quarter: 2025Q2

REPORT INFORMATION
  Report Type: Spontaneous
  Country: US (occurrence: None)
  Receive Date: 20250528
  Receipt Date: 20250528
  Transmission Date: 20250716
  Serious: Yes (Other)
  Sender: FDA-CTU
  Company Number: None

PATIENT
  Age: 87 Year
  Sex: Female
  Weight: 43.09 kg

DRUGS (11)
  1. CLOPIDOGREL BISULFATE [Suspect]
     Active Substance: CLOPIDOGREL BISULFATE
     Indication: Transient ischaemic attack
     Dosage: FREQUENCY : DAILY;?
     Dates: start: 20250427, end: 20250506
  2. Trelegy Ellipta 200 [Concomitant]
  3. LATANOPROST [Concomitant]
     Active Substance: LATANOPROST
  4. BUTABARBITAL [Concomitant]
     Active Substance: BUTABARBITAL
  5. ATORVASTATIN [Concomitant]
     Active Substance: ATORVASTATIN
  6. ALBUTEROL [Concomitant]
     Active Substance: ALBUTEROL
  7. CLONIDINE [Concomitant]
     Active Substance: CLONIDINE
  8. CALCIUM [Concomitant]
     Active Substance: CALCIUM
  9. ASPIRIN [Concomitant]
     Active Substance: ASPIRIN
  10. ACETAMINOPHEN [Concomitant]
     Active Substance: ACETAMINOPHEN
  11. SYSTANE EYEDROPS [Concomitant]
     Active Substance: POLYETHYLENE GLYCOL 400\PROPYLENE GLYCOL

REACTIONS (9)
  - Chills [None]
  - Pyrexia [None]
  - Peripheral swelling [None]
  - Peripheral swelling [None]
  - Peripheral swelling [None]
  - Swelling face [None]
  - Tremor [None]
  - Dry skin [None]
  - Erythema [None]

NARRATIVE: CASE EVENT DATE: 20250429
